FAERS Safety Report 6133699-2 (Version None)
Quarter: 2009Q1

REPORT INFORMATION
  Report Type: 
  Country: None (occurrence: None)
  Receive Date: 20090326
  Receipt Date: 20090319
  Transmission Date: 20090719
  Serious: Yes (Hospitalization)
  Sender: FDA-Public Use
  Company Number: B0565773A

PATIENT
  Age: 80 Year
  Sex: Male

DRUGS (6)
  1. DEROXAT [Suspect]
     Indication: DRUG USE FOR UNKNOWN INDICATION
     Route: 048
     Dates: end: 20080221
  2. RISPERDAL [Suspect]
     Indication: DRUG USE FOR UNKNOWN INDICATION
     Route: 048
     Dates: end: 20080221
  3. INSULATARD [Concomitant]
     Route: 065
  4. NEXIUM [Concomitant]
     Route: 065
  5. XATRAL [Concomitant]
     Route: 065
  6. AMLOR [Concomitant]
     Route: 065

REACTIONS (2)
  - DISORIENTATION [None]
  - SOMNOLENCE [None]
